FAERS Safety Report 21355851 (Version 1)
Quarter: 2022Q3

REPORT INFORMATION
  Report Type: Spontaneous
  Country: US (occurrence: None)
  Receive Date: 20220920
  Receipt Date: 20220920
  Transmission Date: 20221027
  Serious: Yes (Life-Threatening, Hospitalization)
  Sender: FDA-Public Use
  Company Number: None

PATIENT
  Age: 49 Year
  Sex: Male
  Weight: 76.9 kg

DRUGS (9)
  1. JARDIANCE [Suspect]
     Active Substance: EMPAGLIFLOZIN
     Indication: Diabetes mellitus
     Dosage: FREQUENCY : DAILY;?
     Route: 048
     Dates: end: 20220912
  2. DIGOXIN [Concomitant]
     Active Substance: DIGOXIN
  3. RIVAROXABAN [Concomitant]
     Active Substance: RIVAROXABAN
  4. TORSEMIDE [Concomitant]
     Active Substance: TORSEMIDE
  5. ATORVASTATIN [Concomitant]
     Active Substance: ATORVASTATIN
  6. SACUBITRIL\VALSARTAN [Concomitant]
     Active Substance: SACUBITRIL\VALSARTAN
  7. BISOPROLOL [Concomitant]
     Active Substance: BISOPROLOL
  8. MONTELUKAST [Concomitant]
     Active Substance: MONTELUKAST SODIUM
  9. Acetylcysteine-acebrophylline [Concomitant]

REACTIONS (3)
  - Testicular swelling [None]
  - Testicular pain [None]
  - Fournier^s gangrene [None]

NARRATIVE: CASE EVENT DATE: 20220911
